FAERS Safety Report 6357742-0 (Version None)
Quarter: 2009Q3

REPORT INFORMATION
  Report Type: 
  Country: None (occurrence: None)
  Receive Date: 20090911
  Receipt Date: 20090828
  Transmission Date: 20100115
  Serious: Yes (Hospitalization)
  Sender: FDA-Public Use
  Company Number: 8050964

PATIENT
  Age: 55 Year
  Sex: Female
  Weight: 67.8 kg

DRUGS (8)
  1. KEPPRA [Suspect]
     Indication: EPILEPSY
     Dosage: 500 MG 2/D PO
     Route: 048
     Dates: start: 20090810, end: 20090817
  2. TEGRETOL [Suspect]
     Indication: EPILEPSY
     Dosage: 200 MG 2/D PO
     Route: 048
     Dates: start: 20090714, end: 20090701
  3. ASPIRIN [Concomitant]
  4. ATENOLOL [Concomitant]
  5. NEXIUM [Concomitant]
  6. FENISTIL [Concomitant]
  7. METHYLPREDNISOLONE ACETATE [Concomitant]
  8. CALCIUM EFFERVESCENT [Concomitant]

REACTIONS (4)
  - HEMIPARESIS [None]
  - HEPATIC FAILURE [None]
  - INFARCTION [None]
  - RASH [None]
